FAERS Safety Report 4947011-5 (Version None)
Quarter: 2006Q1

REPORT INFORMATION
  Report Type: 
  Country: None (occurrence: None)
  Receive Date: 20060127
  Receipt Date: 20051129
  Transmission Date: 20060701
  Serious: Yes (Other)
  Sender: FDA-Public Use
  Company Number: 2005163561

PATIENT
  Sex: Male

DRUGS (1)
  1. LYRICA [Suspect]
     Indication: NEUROPATHY PERIPHERAL
     Dosage: (3 IN 1 D)

REACTIONS (4)
  - DISORIENTATION [None]
  - DYSPNOEA [None]
  - OVERDOSE [None]
  - TREMOR [None]
